FAERS Safety Report 5194523-8 (Version None)
Quarter: 2006Q4

REPORT INFORMATION
  Report Type: 
  Country: None (occurrence: None)
  Receive Date: 20061222
  Receipt Date: 20061214
  Transmission Date: 20070319
  Serious: Yes (Other)
  Sender: FDA-Public Use
  Company Number: 2006S1000180

PATIENT
  Age: 7 Day
  Sex: Male

DRUGS (16)
  1. NITRIC OXIDE [Suspect]
     Indication: LUNG DISORDER
     Dosage: 5 PPM; INH_GAS; INH; CONT INH
     Route: 055
     Dates: start: 20050720, end: 20050730
  2. NITRIC OXIDE [Suspect]
     Indication: PROPHYLAXIS
     Dosage: 5 PPM; INH_GAS; INH; CONT INH
     Route: 055
     Dates: start: 20050720, end: 20050730
  3. OMEPRAZOLE [Concomitant]
  4. PHYTONADIONE [Concomitant]
  5. INSULIN [Concomitant]
  6. AMPICILLIN [Concomitant]
  7. GENTAMICIN [Concomitant]
  8. FLUCONAZOLE [Concomitant]
  9. PHYTONADIONE [Concomitant]
  10. DIAZEPAM [Concomitant]
  11. VANCOMYCIN [Concomitant]
  12. CEFOTAXIME SODIUM [Concomitant]
  13. IBUPROFEN [Concomitant]
  14. CAFFEINE CITRATE (CAFFEINE CITRATE) [Concomitant]
  15. DOXAPRAM (DOXAPRAM) [Concomitant]
  16. DIAZEPAM [Concomitant]

REACTIONS (2)
  - BLOOD GLUCOSE INCREASED [None]
  - GASTRIC HAEMORRHAGE [None]
